FAERS Safety Report 6232632-2 (Version None)
Quarter: 2009Q2

REPORT INFORMATION
  Report Type: 
  Country: None (occurrence: None)
  Receive Date: 20090615
  Receipt Date: 20090615
  Transmission Date: 20091009
  Serious: Yes (Life-Threatening)
  Sender: FDA-Public Use
  Company Number: None

PATIENT
  Age: 63 Year
  Sex: Female
  Weight: 55.5 kg

DRUGS (2)
  1. NITROFUR(GENERIC) FOR MACROBID 100 MG MYLAN? [Suspect]
     Indication: CYSTITIS NONINFECTIVE
     Dosage: 100 MG. 2 A DAY
     Dates: start: 20090519
  2. NITROFUR(GENERIC) FOR MACROBID 100 MG MYLAN? [Suspect]
     Indication: CYSTITIS NONINFECTIVE
     Dosage: 100 MG. 2 A DAY
     Dates: start: 20090520

REACTIONS (12)
  - ABDOMINAL DISCOMFORT [None]
  - CHILLS [None]
  - CONTUSION [None]
  - COUGH [None]
  - DIARRHOEA [None]
  - DIZZINESS [None]
  - HYPOPHAGIA [None]
  - MYALGIA [None]
  - PAIN [None]
  - PYREXIA [None]
  - RASH [None]
  - VISION BLURRED [None]
